FAERS Safety Report 8424263-0 (Version None)
Quarter: 2012Q2

REPORT INFORMATION
  Report Type: 
  Country: None (occurrence: None)
  Receive Date: 20120608
  Receipt Date: 20111202
  Transmission Date: 20120825
  Serious: No
  Sender: FDA-Public Use
  Company Number: US-ASTRAZENECA-2011SE70267

PATIENT
  Age: 62 Year
  Sex: Female
  Weight: 73.9 kg

DRUGS (4)
  1. PREDNISONE [Concomitant]
  2. PULMICORT FLEXHALER [Suspect]
     Indication: BRONCHIECTASIS
     Route: 055
     Dates: start: 20111015
  3. BISTROLOL [Concomitant]
     Indication: HYPERTENSION
  4. COUGH LOZENGES [Concomitant]

REACTIONS (3)
  - OFF LABEL USE [None]
  - INCORRECT DOSE ADMINISTERED [None]
  - COUGH [None]
